FAERS Safety Report 5340077-2 (Version None)
Quarter: 2007Q2

REPORT INFORMATION
  Report Type: 
  Country: None (occurrence: None)
  Receive Date: 20070525
  Receipt Date: 20070525
  Transmission Date: 20071010
  Serious: Yes (Life-Threatening, Hospitalization)
  Sender: FDA-Public Use
  Company Number: None

PATIENT
  Age: 55 Year
  Sex: Female
  Weight: 65.7716 kg

DRUGS (6)
  1. MEPERIDINE HCL [Suspect]
     Indication: PAIN
     Dosage: 100 MG Q3H IV
     Route: 042
     Dates: start: 20061011, end: 20061013
  2. PROMETHAZINE [Suspect]
     Indication: NAUSEA
     Dosage: 25 MG Q3H IV
     Route: 042
     Dates: start: 20061011, end: 20061013
  3. INDERAL [Concomitant]
  4. LEXAPRO [Concomitant]
  5. IMITREX [Concomitant]
  6. AMBIEN [Concomitant]

REACTIONS (9)
  - ABDOMINAL PAIN [None]
  - CARDIO-RESPIRATORY ARREST [None]
  - CONVULSION [None]
  - DIARRHOEA [None]
  - FALL [None]
  - IRRITABLE BOWEL SYNDROME [None]
  - LOSS OF CONSCIOUSNESS [None]
  - NAUSEA [None]
  - VOMITING [None]
